FAERS Safety Report 25169182 (Version 2)
Quarter: 2025Q2

REPORT INFORMATION
  Report Type: Report from Study
  Country: BR (occurrence: BR)
  Receive Date: 20250407
  Receipt Date: 20250415
  Transmission Date: 20250717
  Serious: Yes (Other)
  Sender: JOHNSON AND JOHNSON
  Company Number: BR-JNJFOC-20250386929

PATIENT
  Age: 47 Year
  Sex: Female
  Weight: 51 kg

DRUGS (2)
  1. SIMPONI [Suspect]
     Active Substance: GOLIMUMAB
     Indication: Psoriatic arthropathy
     Route: 058
     Dates: start: 202410
  2. SIMPONI [Suspect]
     Active Substance: GOLIMUMAB

REACTIONS (7)
  - Gingival bleeding [Unknown]
  - Psoriatic arthropathy [Unknown]
  - Fatigue [Unknown]
  - Disorientation [Unknown]
  - Vision blurred [Unknown]
  - Bone loss [Unknown]
  - Therapeutic response decreased [Unknown]

NARRATIVE: CASE EVENT DATE: 20250301
